FAERS Safety Report 9971819 (Version 1)
Quarter: 2014Q1

REPORT INFORMATION
  Report Type: Report from Study
  Country: US (occurrence: US)
  Receive Date: 20140306
  Receipt Date: 20140306
  Transmission Date: 20141002
  Serious: No
  Sender: FDA-Public Use
  Company Number: US-ABBVIE-13P-163-1148274-00

PATIENT
  Age: 26 Year
  Sex: Male

DRUGS (4)
  1. HUMIRA [Suspect]
     Indication: COLITIS ULCERATIVE
     Dates: start: 20130725, end: 20130725
  2. HUMIRA [Suspect]
     Dates: start: 20130808, end: 20130808
  3. HUMIRA [Suspect]
     Dates: start: 201309, end: 20130913
  4. HUMIRA [Suspect]
     Dates: start: 20130913

REACTIONS (1)
  - Frequent bowel movements [Not Recovered/Not Resolved]
